FAERS Safety Report 6439300-2 (Version None)
Quarter: 2009Q4

REPORT INFORMATION
  Report Type: 
  Country: None (occurrence: None)
  Receive Date: 20091110
  Receipt Date: 20091026
  Transmission Date: 20100525
  Serious: Yes (Death, Hospitalization)
  Sender: FDA-Public Use
  Company Number: 2009AC000333

PATIENT
  Age: 49 Year
  Sex: Male

DRUGS (28)
  1. DIGOXIN [Suspect]
     Dosage: .25 MG;PO
     Route: 048
     Dates: start: 20030501
  2. FUROSEMIDE [Concomitant]
  3. CEPHALEXIN [Concomitant]
  4. HYDROCODONE [Concomitant]
  5. ALTACE [Concomitant]
  6. KLOR-CON [Concomitant]
  7. HYDROCHLOROTHIAZIDE [Concomitant]
  8. ASCENSIA [Concomitant]
  9. COREG [Concomitant]
  10. LUNESTA [Concomitant]
  11. POTASSIUM [Concomitant]
  12. RAMIPRIL [Concomitant]
  13. CARVEDILOL [Concomitant]
  14. ENOXAPARIN SODIUM [Concomitant]
  15. ASPIRIN [Concomitant]
  16. VASOTEC [Concomitant]
  17. INSULIN [Concomitant]
  18. ZOLPIDEM [Concomitant]
  19. INSPIRA [Concomitant]
  20. SPIRONOLACTONE [Concomitant]
  21. EPLERODONE [Concomitant]
  22. MICRO-K [Concomitant]
  23. NESIRITIDE [Concomitant]
  24. ATROPINE [Concomitant]
  25. EPINEPHRINE [Concomitant]
  26. AMIODARONE HCL [Concomitant]
  27. CIPROFLOXACIN [Concomitant]
  28. LONOX [Concomitant]

REACTIONS (13)
  - ACUTE CORONARY SYNDROME [None]
  - APNOEA [None]
  - ASTHENIA [None]
  - CARDIAC FAILURE [None]
  - CARDIO-RESPIRATORY ARREST [None]
  - CARDIOMYOPATHY [None]
  - DYSPNOEA [None]
  - ELECTROMECHANICAL DISSOCIATION [None]
  - FEELING ABNORMAL [None]
  - SWELLING [None]
  - VENTRICULAR FIBRILLATION [None]
  - VENTRICULAR TACHYCARDIA [None]
  - WEIGHT INCREASED [None]
